FAERS Safety Report 7110590-6 (Version None)
Quarter: 2010Q4

REPORT INFORMATION
  Report Type: 
  Country: None (occurrence: None)
  Receive Date: 20101118
  Receipt Date: 20101110
  Transmission Date: 20110411
  Serious: Yes (Death, Hospitalization)
  Sender: FDA-Public Use
  Company Number: JP-ROCHE-735022

PATIENT
  Sex: Female
  Weight: 32 kg

DRUGS (3)
  1. AVASTIN [Suspect]
     Indication: LUNG ADENOCARCINOMA
     Route: 041
     Dates: start: 20100713, end: 20100921
  2. TAXOL [Suspect]
     Indication: LUNG ADENOCARCINOMA
     Route: 042
     Dates: start: 20100713, end: 20100713
  3. TAXOL [Suspect]
     Dosage: DISCONTINUED.
     Route: 042
     Dates: start: 20100803, end: 20100914

REACTIONS (5)
  - ASPHYXIA [None]
  - CONVULSION [None]
  - HAEMOPTYSIS [None]
  - SENSORY DISTURBANCE [None]
  - VISUAL IMPAIRMENT [None]
